FAERS Safety Report 20930108 (Version 1)
Quarter: 2022Q2

REPORT INFORMATION
  Report Type: Spontaneous
  Country: US (occurrence: US)
  Receive Date: 20220608
  Receipt Date: 20220608
  Transmission Date: 20220720
  Serious: No
  Sender: FDA-Public Use
  Company Number: US-GSKCCFUS-Case-01395829_AE-80455

PATIENT
  Sex: Female

DRUGS (1)
  1. TRELEGY ELLIPTA [Interacting]
     Active Substance: FLUTICASONE FUROATE\UMECLIDINIUM BROMIDE\VILANTEROL TRIFENATATE
     Indication: Product used for unknown indication
     Dosage: 1 PUFF(S), QD 100/62.5/25 MCG
     Route: 055
     Dates: start: 2022

REACTIONS (7)
  - Headache [Not Recovered/Not Resolved]
  - Oral pain [Unknown]
  - Glossodynia [Not Recovered/Not Resolved]
  - Oral discomfort [Unknown]
  - Wrong technique in device usage process [Unknown]
  - Labelled drug-disease interaction medication error [Unknown]
  - Product prescribing issue [Unknown]

NARRATIVE: CASE EVENT DATE: 20220101
